FAERS Safety Report 26067114 (Version 1)
Quarter: 2025Q4

REPORT INFORMATION
  Report Type: Spontaneous
  Country: CN (occurrence: CN)
  Receive Date: 20251119
  Receipt Date: 20251119
  Transmission Date: 20260117
  Serious: Yes (Hospitalization, Other)
  Sender: ABBVIE
  Company Number: CN-LUNDBECK-DKLU4021898

PATIENT
  Age: 21 Year
  Sex: Male
  Weight: 75 kg

DRUGS (4)
  1. ESCITALOPRAM OXALATE [Suspect]
     Active Substance: ESCITALOPRAM OXALATE
     Indication: Completed suicide
     Dosage: OVERDOSE: UNKNOWN DOSE
     Route: 048
  2. ZOPICLONE [Suspect]
     Active Substance: ZOPICLONE
     Indication: Completed suicide
     Route: 048
  3. VALPROATE SODIUM [Suspect]
     Active Substance: VALPROATE SODIUM
     Indication: Completed suicide
     Route: 048
  4. QUETIAPINE FUMARATE [Suspect]
     Active Substance: QUETIAPINE FUMARATE
     Indication: Completed suicide
     Dosage: 10 DOSAGE FORM
     Route: 048

REACTIONS (3)
  - Altered state of consciousness [Recovering/Resolving]
  - Overdose [Recovering/Resolving]
  - Agitation [Recovering/Resolving]
